FAERS Safety Report 5429984-X (Version None)
Quarter: 2007Q3

REPORT INFORMATION
  Report Type: 
  Country: None (occurrence: None)
  Receive Date: 20070829
  Receipt Date: 20070808
  Transmission Date: 20080115
  Serious: No
  Sender: FDA-Public Use
  Company Number: US-BOEHRINGER INGELHEIM PHARMACEUTICALS, INC.-2007-BP-18867BP

PATIENT
  Age: 80 Year
  Sex: Female

DRUGS (1)
  1. AGGRENOX [Suspect]
     Dates: start: 20050101

REACTIONS (1)
  - PURPURA [None]
